FAERS Safety Report 9337106 (Version 4)
Quarter: 2013Q3

REPORT INFORMATION
  Report Type: Report from Study
  Country: US (occurrence: US)
  Receive Date: 20130607
  Receipt Date: 20130708
  Transmission Date: 20140515
  Serious: Yes (Hospitalization)
  Sender: FDA-Public Use
  Company Number: US-JNJFOC-20130522942

PATIENT
  Age: 16 Year
  Sex: Male
  Weight: 53.7 kg

DRUGS (3)
  1. REMICADE [Suspect]
     Indication: CROHN^S DISEASE
     Route: 042
     Dates: start: 20130128
  2. METHOTREXATE [Concomitant]
     Route: 065
  3. LOVENOX [Concomitant]
     Route: 065

REACTIONS (1)
  - Deep vein thrombosis [Recovered/Resolved]
